FAERS Safety Report 7258828-9 (Version None)
Quarter: 2011Q1

REPORT INFORMATION
  Report Type: 
  Country: None (occurrence: None)
  Receive Date: 20110129
  Receipt Date: 20100511
  Transmission Date: 20110831
  Serious: No
  Sender: FDA-Public Use
  Company Number: US-ABBOTT-10P-163-0642742-00

PATIENT
  Age: 55 Year
  Sex: Female

DRUGS (6)
  1. ISOMEPROZOL [Concomitant]
     Indication: GASTROOESOPHAGEAL REFLUX DISEASE
  2. RECLAST [Concomitant]
     Indication: OSTEOPOROSIS
     Dates: start: 20100101
  3. TALMASARTAN [Concomitant]
     Indication: HYPERTENSION
  4. CETERZINE [Concomitant]
     Indication: HYPERSENSITIVITY
  5. HYDROCHLORATHIAZIDE [Concomitant]
     Indication: HYPERTENSION
  6. HUMIRA [Suspect]
     Indication: PSORIASIS
     Dates: start: 20071101, end: 20100401

REACTIONS (2)
  - LUPUS-LIKE SYNDROME [None]
  - RASH [None]
